FAERS Safety Report 15315768 (Version 1)
Quarter: 2018Q3

REPORT INFORMATION
  Report Type: Spontaneous
  Country: US (occurrence: US)
  Receive Date: 20180815
  Receipt Date: 20180815
  Transmission Date: 20181010
  Serious: Yes (Life-Threatening, Disabling)
  Sender: FDA-Public Use
  Company Number: None

PATIENT
  Age: 75 Year
  Sex: Male
  Weight: 95.25 kg

DRUGS (2)
  1. VALSARTAN ALL STRENGTHS ALL LOTS [Suspect]
     Active Substance: VALSARTAN
     Indication: HYPERTENSION
     Route: 048
  2. VALSARTAN ALL STRENGTHS ALL LOTS [Suspect]
     Active Substance: VALSARTAN
     Indication: HYPERTENSION
     Route: 048
     Dates: start: 2016, end: 201807

REACTIONS (2)
  - Leukoplakia [None]
  - Squamous cell carcinoma [None]

NARRATIVE: CASE EVENT DATE: 20180215
